FAERS Safety Report 23376471 (Version 2)
Quarter: 2024Q1

REPORT INFORMATION
  Report Type: Report from Study
  Country: US (occurrence: US)
  Receive Date: 20240108
  Receipt Date: 20240116
  Transmission Date: 20240410
  Serious: Yes (Other)
  Sender: FDA-Public Use
  Company Number: US-ABBVIE-5574041

PATIENT
  Sex: Male
  Weight: 82 kg

DRUGS (1)
  1. HUMIRA [Suspect]
     Active Substance: ADALIMUMAB
     Indication: Rheumatoid arthritis
     Dosage: STRENGTH: 40 MILLIGRAM?CITRATE FREE
     Route: 058
     Dates: start: 20230407

REACTIONS (5)
  - Intestinal anastomosis [Unknown]
  - Rheumatoid arthritis [Unknown]
  - Frequent bowel movements [Unknown]
  - Fistula [Unknown]
  - Pain [Unknown]

NARRATIVE: CASE EVENT DATE: 20230101
